FAERS Safety Report 6120915-6 (Version None)
Quarter: 2009Q1

REPORT INFORMATION
  Report Type: 
  Country: None (occurrence: None)
  Receive Date: 20090317
  Receipt Date: 20090313
  Transmission Date: 20090719
  Serious: Yes (Death, Hospitalization)
  Sender: FDA-Public Use
  Company Number: US-CELGENEUS-163-21880-08011534

PATIENT
  Sex: Female

DRUGS (2)
  1. REVLIMID [Suspect]
     Indication: BREAST NEOPLASM
     Route: 048
     Dates: start: 20080122, end: 20080301
  2. REVLIMID [Suspect]

REACTIONS (5)
  - CHILLS [None]
  - DEATH [None]
  - DYSPNOEA [None]
  - FATIGUE [None]
  - PAIN [None]
